FAERS Safety Report 15958914 (Version 4)
Quarter: 2019Q2

REPORT INFORMATION
  Report Type: Spontaneous
  Country: CA (occurrence: CA)
  Receive Date: 20190214
  Receipt Date: 20190403
  Transmission Date: 20190711
  Serious: Yes (Death, Other)
  Sender: FDA-Public Use
  Company Number: CA-BAXTER-2019BAX003098

PATIENT
  Age: 61 Year
  Sex: Female

DRUGS (2)
  1. PRISMASOL 0 [Suspect]
     Active Substance: DEXTROSE\LACTIC ACID\MAGNESIUM CL\POTASSIUM CL\SODIUM BICARBONATE\SODIUM CL
     Indication: RENAL REPLACEMENT THERAPY
     Route: 010
     Dates: end: 20181211
  2. PRISMASOL 0 [Suspect]
     Active Substance: DEXTROSE\LACTIC ACID\MAGNESIUM CL\POTASSIUM CL\SODIUM BICARBONATE\SODIUM CL
     Route: 010
     Dates: start: 20181211

REACTIONS (10)
  - Death [Fatal]
  - Haemorrhage [Unknown]
  - Haemodialysis complication [Unknown]
  - Tachycardia [Unknown]
  - Haemorrhage [Unknown]
  - Muscle twitching [Recovered/Resolved]
  - Seizure [Recovered/Resolved]
  - Haemodialysis complication [Unknown]
  - Device issue [Unknown]
  - Malaise [Unknown]

NARRATIVE: CASE EVENT DATE: 20190128
